FAERS Safety Report 6043994-3 (Version None)
Quarter: 2009Q1

REPORT INFORMATION
  Report Type: 
  Country: None (occurrence: None)
  Receive Date: 20090120
  Receipt Date: 20090108
  Transmission Date: 20090719
  Serious: Yes (Other)
  Sender: FDA-Public Use
  Company Number: AU-PFIZER INC-2009155808

PATIENT

DRUGS (2)
  1. NORVASC [Suspect]
     Dosage: 10 MG, UNK
  2. CARDIPRIN [Concomitant]

REACTIONS (3)
  - PERIPHERAL PARALYSIS [None]
  - POLLAKIURIA [None]
  - SENSATION OF HEAVINESS [None]
